FAERS Safety Report 4483571-9 (Version None)
Quarter: 2004Q4

REPORT INFORMATION
  Report Type: 
  Country: None (occurrence: None)
  Receive Date: 20041021
  Receipt Date: 20041021
  Transmission Date: 20050328
  Serious: Yes (Hospitalization)
  Sender: FDA-Public Use
  Company Number: None

PATIENT
  Age: 86 Year
  Sex: Male
  Weight: 62.6 kg

DRUGS (21)
  1. MORPHINE [Suspect]
  2. MUPIROCIN [Concomitant]
  3. CLINDAMYCIN HCL [Concomitant]
  4. HYDROXYZINE [Concomitant]
  5. LORATADINE [Concomitant]
  6. FUROSEMIDE [Concomitant]
  7. SILVER SULFADIAZINE [Concomitant]
  8. TEMAZEPAM [Concomitant]
  9. SIMVASTATIN [Concomitant]
  10. LORAZEPAM [Concomitant]
  11. CLONIDINE HCL [Concomitant]
  12. MAGNESIUM HYDROXIDE TAB [Concomitant]
  13. SERTRALINE HCL [Concomitant]
  14. SALMETEROL [Concomitant]
  15. RANITIDINE [Concomitant]
  16. NITROGLYCERIN [Concomitant]
  17. ACETAMINOPHEN [Concomitant]
  18. ATENOLOL [Concomitant]
  19. IPATROPIUM BROMIDE [Concomitant]
  20. ALBUTEROL [Concomitant]
  21. BISACODYL [Concomitant]

REACTIONS (1)
  - URTICARIA [None]
